FAERS Safety Report 19353206 (Version 1)
Quarter: 2021Q2

REPORT INFORMATION
  Report Type: Spontaneous
  Country: JO (occurrence: JO)
  Receive Date: 20210601
  Receipt Date: 20210601
  Transmission Date: 20210717
  Serious: Yes (Other)
  Sender: FDA-Public Use
  Company Number: JO-ANIPHARMA-2021-JO-000001

PATIENT
  Age: 57 Year
  Sex: Male

DRUGS (3)
  1. CYCLOPHOSPHAMIDE CAPSULES (NON?SPECIFIC) [Suspect]
     Active Substance: CYCLOPHOSPHAMIDE
     Indication: THYMOMA
  2. DOXORUBICIN [Suspect]
     Active Substance: DOXORUBICIN
     Indication: THYMOMA
  3. CISPLATIN. [Suspect]
     Active Substance: CISPLATIN
     Indication: THYMOMA

REACTIONS (1)
  - Myocardial rupture [Unknown]
